FAERS Safety Report 15414704 (Version 1)
Quarter: 2018Q3

REPORT INFORMATION
  Report Type: Spontaneous
  Country: US (occurrence: US)
  Receive Date: 20180921
  Receipt Date: 20180921
  Transmission Date: 20181010
  Serious: No
  Sender: FDA-Public Use
  Company Number: US-MYLANLABS-2018M1068037

PATIENT
  Sex: Female
  Weight: 53 kg

DRUGS (1)
  1. ZOLPIDEM [Suspect]
     Active Substance: ZOLPIDEM\ZOLPIDEM TARTRATE
     Indication: INSOMNIA
     Dosage: UNK
     Route: 048
     Dates: start: 2016

REACTIONS (5)
  - Feeling abnormal [Recovered/Resolved]
  - Therapy non-responder [Recovered/Resolved]
  - Hypersensitivity [Recovered/Resolved]
  - Abdominal distension [Recovered/Resolved]
  - Dark circles under eyes [Recovered/Resolved]

NARRATIVE: CASE EVENT DATE: 2016
